FAERS Safety Report 7412874-0 (Version None)
Quarter: 2011Q2

REPORT INFORMATION
  Report Type: 
  Country: None (occurrence: None)
  Receive Date: 20110413
  Receipt Date: 20110321
  Transmission Date: 20111010
  Serious: Yes (Other)
  Sender: FDA-Public Use
  Company Number: D0070690A

PATIENT
  Sex: Male

DRUGS (4)
  1. AZILECT [Suspect]
     Route: 065
  2. AMANTADINE HCL [Suspect]
     Route: 065
  3. REQUIP [Suspect]
     Route: 065
     Dates: start: 20101027, end: 20110309
  4. MOVERGAN [Suspect]
     Route: 065

REACTIONS (6)
  - SLEEP DISORDER [None]
  - DRUG INEFFECTIVE [None]
  - LOSS OF CONSCIOUSNESS [None]
  - NAUSEA [None]
  - BALANCE DISORDER [None]
  - HEADACHE [None]
